FAERS Safety Report 5281638-9 (Version None)
Quarter: 2007Q1

REPORT INFORMATION
  Report Type: 
  Country: None (occurrence: None)
  Receive Date: 20061215
  Receipt Date: 20060613
  Transmission Date: 20070707
  Serious: Yes (Other)
  Sender: FDA-Public Use
  Company Number: HQWYE232615JUN06

PATIENT
  Age: 33 Year
  Sex: Male
  Weight: 108.96 kg

DRUGS (5)
  1. EFFEXOR XR [Suspect]
     Indication: BIPOLAR DISORDER
     Dosage: SEE IMAGE
     Dates: end: 20060601
  2. EFFEXOR XR [Suspect]
     Indication: BIPOLAR DISORDER
     Dosage: SEE IMAGE
     Dates: start: 20060602, end: 20060608
  3. EFFEXOR XR [Suspect]
     Indication: BIPOLAR DISORDER
     Dosage: SEE IMAGE
     Dates: start: 20060609
  4. LAMICTAL [Suspect]
     Indication: BIPOLAR DISORDER
     Dosage: 25 MG 1X PER 1 DAY
     Dates: start: 20060602
  5. IBUPROFEN [Concomitant]

REACTIONS (8)
  - AMNESIA [None]
  - BLOOD PRESSURE INCREASED [None]
  - DIARRHOEA [None]
  - DRUG WITHDRAWAL SYNDROME [None]
  - FEELING ABNORMAL [None]
  - HAEMATEMESIS [None]
  - MIGRAINE [None]
  - NAUSEA [None]
